FAERS Safety Report 6963820-5 (Version None)
Quarter: 2010Q3

REPORT INFORMATION
  Report Type: 
  Country: None (occurrence: None)
  Receive Date: 20100830
  Receipt Date: 20100816
  Transmission Date: 20110219
  Serious: Yes (Hospitalization, Other)
  Sender: FDA-Public Use
  Company Number: 2010PV000041

PATIENT
  Age: 27 Year
  Sex: Male

DRUGS (1)
  1. DEPOCYT [Suspect]
     Indication: T-CELL TYPE ACUTE LEUKAEMIA

REACTIONS (11)
  - ARACHNOIDITIS [None]
  - BACK PAIN [None]
  - DIPLOPIA [None]
  - HYPERACUSIS [None]
  - INTRACRANIAL PRESSURE INCREASED [None]
  - NUCHAL RIGIDITY [None]
  - PAPILLOEDEMA [None]
  - PARESIS CRANIAL NERVE [None]
  - PHOTOPHOBIA [None]
  - RETINAL HAEMORRHAGE [None]
  - VITH NERVE DISORDER [None]
